FAERS Safety Report 5233456-5 (Version None)
Quarter: 2007Q1

REPORT INFORMATION
  Report Type: 
  Country: None (occurrence: None)
  Receive Date: 20070208
  Receipt Date: 20070205
  Transmission Date: 20070707
  Serious: Yes (Death, Life-Threatening, Hospitalization)
  Sender: FDA-Public Use
  Company Number: CH-SANOFI-SYNTHELABO-F01200700161

PATIENT

DRUGS (3)
  1. CAPECITABINE [Suspect]
     Route: 048
     Dates: start: 20070103, end: 20070116
  2. NEXIUM [Concomitant]
     Route: 048
     Dates: start: 20061026, end: 20070123
  3. OXALIPLATIN [Suspect]
     Indication: COLORECTAL CANCER METASTATIC
     Route: 041
     Dates: start: 20070103, end: 20070103

REACTIONS (3)
  - CLOSTRIDIAL INFECTION [None]
  - NECROTISING FASCIITIS [None]
  - SEPSIS [None]
